FAERS Safety Report 11969500 (Version 1)
Quarter: 2016Q1

REPORT INFORMATION
  Report Type: Spontaneous
  Country: US (occurrence: None)
  Receive Date: 20160127
  Receipt Date: 20160127
  Transmission Date: 20160526
  Serious: No
  Sender: FDA-Public Use
  Company Number: None

PATIENT
  Age: 56 Year
  Sex: Male
  Weight: 136.08 kg

DRUGS (4)
  1. CPAP [Concomitant]
     Active Substance: DEVICE
  2. ALBUTEROL. [Concomitant]
     Active Substance: ALBUTEROL
  3. PREPOPIK [Suspect]
     Active Substance: ANHYDROUS CITRIC ACID\MAGNESIUM OXIDE\SODIUM PICOSULFATE
     Indication: BOWEL PREPARATION
     Dosage: 2 PACKETS  ONCE DAILY TAKEN BY MOUTH
     Route: 048
     Dates: start: 20160125, end: 20160126
  4. SYMBICORT [Concomitant]
     Active Substance: BUDESONIDE\FORMOTEROL FUMARATE DIHYDRATE

REACTIONS (1)
  - Drug ineffective [None]

NARRATIVE: CASE EVENT DATE: 20160125
